FAERS Safety Report 14420400 (Version 1)
Quarter: 2018Q1

REPORT INFORMATION
  Report Type: Spontaneous
  Country: US (occurrence: US)
  Receive Date: 20180122
  Receipt Date: 20180122
  Transmission Date: 20180509
  Serious: No
  Sender: FDA-Public Use
  Company Number: US-ROCHE-1933649

PATIENT
  Age: 65 Year
  Sex: Female
  Weight: 70.37 kg

DRUGS (1)
  1. RITUXAN [Suspect]
     Active Substance: RITUXIMAB
     Indication: MULTIPLE SCLEROSIS
     Dosage: EACH TREATMENT IS 2 INFUSIONS 2 WEEKS APART ;ONGOING: YES
     Route: 042
     Dates: start: 201605

REACTIONS (3)
  - Erythema [Not Recovered/Not Resolved]
  - Off label use [Unknown]
  - Swelling face [Not Recovered/Not Resolved]

NARRATIVE: CASE EVENT DATE: 20170509
